FAERS Safety Report 8775472 (Version 1)
Quarter: 2012Q4

REPORT INFORMATION
  Report Type: 
  Country: US (occurrence: US)
  Receive Date: 20120910
  Receipt Date: 20120910
  Transmission Date: 20130627
  Serious: Yes (Other)
  Sender: FDA-Public Use
  Company Number: US-AMGEN-USASP2012049662

PATIENT
  Age: 37 Year
  Sex: Male

DRUGS (6)
  1. NEULASTA [Suspect]
     Indication: CHEMOTHERAPY
     Dosage: 6 mg, one time dose
     Route: 058
     Dates: start: 20120808
  2. NEULASTA [Suspect]
  3. ARA-C [Concomitant]
     Indication: ACUTE MYELOID LEUKAEMIA
     Dosage: 3 g/m2, qod
     Route: 042
     Dates: start: 20120802, end: 20120807
  4. CIPRO                              /00697201/ [Concomitant]
     Indication: PROPHYLAXIS
     Dosage: UNK UNK, bid
     Route: 048
     Dates: start: 20120809, end: 20120822
  5. FLUCONAZOLE [Concomitant]
     Indication: PROPHYLAXIS
     Dosage: UNK UNK, tid
     Route: 048
     Dates: start: 20120809, end: 20120822
  6. ACYCLOVIR                          /00587301/ [Concomitant]
     Indication: PROPHYLAXIS
     Dosage: UNK UNK, qd
     Route: 048
     Dates: start: 20120809, end: 20120822

REACTIONS (4)
  - White blood cell disorder [Unknown]
  - Platelet count abnormal [Unknown]
  - Dyspnoea [Recovered/Resolved]
  - Nail discolouration [Recovered/Resolved]
